FAERS Safety Report 5161723-2 (Version None)
Quarter: 2006Q4

REPORT INFORMATION
  Report Type: 
  Country: None (occurrence: None)
  Receive Date: 20061130
  Receipt Date: 20061116
  Transmission Date: 20070319
  Serious: Yes (Hospitalization)
  Sender: FDA-Public Use
  Company Number: ES-ELI_LILLY_AND_COMPANY-ES200611003796

PATIENT
  Age: 86 Year
  Sex: Female

DRUGS (1)
  1. FORTEO [Suspect]
     Indication: OSTEOPOROSIS
     Dosage: 20 UG, DAILY (1/D)
     Route: 058
     Dates: start: 20060130

REACTIONS (8)
  - ANOREXIA [None]
  - DEPRESSED MOOD [None]
  - DEPRESSION [None]
  - DYSPNOEA [None]
  - INSOMNIA [None]
  - PAIN IN EXTREMITY [None]
  - UPPER LIMB FRACTURE [None]
  - VENOUS THROMBOSIS [None]
